FAERS Safety Report 16563741 (Version 1)
Quarter: 2019Q3

REPORT INFORMATION
  Report Type: Spontaneous
  Country: CN (occurrence: CN)
  Receive Date: 20190712
  Receipt Date: 20190712
  Transmission Date: 20191004
  Serious: Yes (Hospitalization)
  Sender: FDA-Public Use
  Company Number: CN-DRREDDYS-GPV/CHN/19/0111772

PATIENT
  Age: 21 Year
  Sex: Male

DRUGS (3)
  1. QIWEI [Suspect]
     Active Substance: QUETIAPINE FUMARATE
     Indication: MENTAL DISORDER
     Route: 048
     Dates: start: 20190130, end: 20190220
  2. BENZHEXOL HYDROCHLORIDE TABLETS [Concomitant]
     Active Substance: TRIHEXYPHENIDYL HYDROCHLORIDE
     Indication: CHOLINERGIC SYNDROME
     Route: 048
     Dates: start: 20190130, end: 20190220
  3. OLANZ (OLANZAPINE) [Suspect]
     Active Substance: OLANZAPINE
     Indication: MENTAL DISORDER
     Route: 048
     Dates: start: 20190130, end: 20190220

REACTIONS (1)
  - Extrapyramidal disorder [Recovering/Resolving]

NARRATIVE: CASE EVENT DATE: 20190220
